FAERS Safety Report 4689477-4 (Version None)
Quarter: 2005Q2

REPORT INFORMATION
  Report Type: 
  Country: None (occurrence: None)
  Receive Date: 20050614
  Receipt Date: 20050603
  Transmission Date: 20051028
  Serious: Yes (Disabling, Other)
  Sender: FDA-Public Use
  Company Number: PHBS2005CH07921

PATIENT
  Age: 61 Year
  Sex: Female

DRUGS (3)
  1. AREDIA [Suspect]
     Indication: METASTASES TO BONE
     Dosage: UNK, UNK
     Route: 042
  2. CISPLATIN [Suspect]
     Indication: BREAST CANCER FEMALE
     Dosage: UNK, UNK
     Route: 065
  3. DEXAMETHASONE [Concomitant]
     Route: 065

REACTIONS (13)
  - ASEPTIC NECROSIS BONE [None]
  - BONE DISORDER [None]
  - BONE LESION [None]
  - EXCESSIVE GRANULATION TISSUE [None]
  - GINGIVAL DISORDER [None]
  - GINGIVITIS [None]
  - IMPAIRED HEALING [None]
  - METASTASES TO BONE [None]
  - METASTASES TO CENTRAL NERVOUS SYSTEM [None]
  - OSTEOMYELITIS [None]
  - PERIODONTITIS [None]
  - SUPERINFECTION ORAL [None]
  - TOOTH EXTRACTION [None]
